FAERS Safety Report 5503730-3 (Version None)
Quarter: 2007Q4

REPORT INFORMATION
  Report Type: 
  Country: None (occurrence: None)
  Receive Date: 20071101
  Receipt Date: 20071021
  Transmission Date: 20080405
  Serious: Yes (Hospitalization)
  Sender: FDA-Public Use
  Company Number: TH-TYCO HEALTHCARE/MALLINCKRODT-T200701275

PATIENT

DRUGS (4)
  1. OPTIRAY 300 [Suspect]
     Indication: UROGRAM
     Dosage: 50 ML, SINGLE
     Route: 042
     Dates: start: 20071019, end: 20071019
  2. ZILARVIR [Concomitant]
     Indication: HIV INFECTION
     Dosage: 1 TABLET BID
     Route: 048
  3. CRIXIVAN                           /01304201/ [Concomitant]
     Indication: HIV INFECTION
     Dosage: 400 MG, BID
     Route: 048
  4. RITONAVIR [Concomitant]
     Indication: HIV INFECTION
     Dosage: 1 TABLET, BID
     Route: 048
     Dates: start: 20071012

REACTIONS (6)
  - ANGIOEDEMA [None]
  - CHEST DISCOMFORT [None]
  - EYE PRURITUS [None]
  - FACE OEDEMA [None]
  - PERIORBITAL OEDEMA [None]
  - PRURITUS [None]
